FAERS Safety Report 11741642 (Version 1)
Quarter: 2015Q4

REPORT INFORMATION
  Report Type: Spontaneous
  Country: US (occurrence: None)
  Receive Date: 20151113
  Receipt Date: 20151113
  Transmission Date: 20160304
  Serious: No
  Sender: FDA-Public Use
  Company Number: None

PATIENT
  Age: 51 Year
  Sex: Female
  Weight: 53.98 kg

DRUGS (7)
  1. PROZAC [Concomitant]
     Active Substance: FLUOXETINE HYDROCHLORIDE
  2. SEROQUEL [Concomitant]
     Active Substance: QUETIAPINE FUMARATE
  3. TOPAMAX [Concomitant]
     Active Substance: TOPIRAMATE
  4. PILOCARPINE 5MG LANNETT [Suspect]
     Active Substance: PILOCARPINE
     Indication: DRY MOUTH
     Dosage: 1TAB 3 TO 4 TIMES PER DAY
     Route: 048
     Dates: start: 20150813, end: 20151105
  5. SYNTHROID [Concomitant]
     Active Substance: LEVOTHYROXINE SODIUM
  6. PREVACID [Concomitant]
     Active Substance: LANSOPRAZOLE
  7. XANAX [Concomitant]
     Active Substance: ALPRAZOLAM

REACTIONS (1)
  - Nausea [None]

NARRATIVE: CASE EVENT DATE: 20150813
